FAERS Safety Report 24424968 (Version 1)
Quarter: 2024Q4

REPORT INFORMATION
  Report Type: Other
  Country: US (occurrence: US)
  Receive Date: 20241010
  Receipt Date: 20241010
  Transmission Date: 20250115
  Serious: No
  Sender: NOSTRUM
  Company Number: US-Nostrum Laboratories, Inc.-2162811

PATIENT
  Age: 65 Year
  Sex: Female

DRUGS (4)
  1. HYDROCODONE BITARTRATE\IBUPROFEN [Suspect]
     Active Substance: HYDROCODONE BITARTRATE\IBUPROFEN
     Indication: Product used for unknown indication
  2. MORPHINE SULFATE [Concomitant]
     Active Substance: MORPHINE SULFATE
  3. GABAPENTIN [Concomitant]
     Active Substance: GABAPENTIN
  4. PERCOCET [Concomitant]
     Active Substance: ACETAMINOPHEN\OXYCODONE HYDROCHLORIDE

REACTIONS (1)
  - Dyspepsia [Unknown]
